FAERS Safety Report 7266121-3 (Version None)
Quarter: 2011Q1

REPORT INFORMATION
  Report Type: 
  Country: None (occurrence: None)
  Receive Date: 20110120
  Receipt Date: 20110110
  Transmission Date: 20110831
  Serious: Yes (Life-Threatening, Hospitalization)
  Sender: FDA-Public Use
  Company Number: 024276

PATIENT
  Sex: Female
  Weight: 45 kg

DRUGS (12)
  1. CORTANCYL [Concomitant]
  2. URBANYL (URBANYL) (NOT SPECIFIED) [Suspect]
     Dosage: ORAL
     Route: 048
     Dates: start: 20101021, end: 20101117
  3. VIREAD /01490001/ [Concomitant]
  4. VFEND [Suspect]
     Dosage: ORAL
     Route: 048
     Dates: start: 20101018, end: 20101115
  5. MOXIFLOXACIN [Concomitant]
  6. KEPPRA [Suspect]
     Dosage: ORAL
     Route: 048
     Dates: start: 20101029, end: 20101124
  7. PARA AMINOSALICYLIC ACID [Concomitant]
  8. CYCLOSERINE [Concomitant]
  9. FLAGYL [Suspect]
     Dosage: ORAL
     Route: 048
     Dates: start: 20101110, end: 20101116
  10. ZIAGEN [Concomitant]
  11. ETHAMBUTOL HYDROCHLORIDE [Concomitant]
  12. KALETRA /01506501/ [Concomitant]

REACTIONS (6)
  - TOXIC EPIDERMAL NECROLYSIS [None]
  - DRUG RASH WITH EOSINOPHILIA AND SYSTEMIC SYMPTOMS [None]
  - INFECTION [None]
  - CYTOLYTIC HEPATITIS [None]
  - CONVULSION [None]
  - STEVENS-JOHNSON SYNDROME [None]
